FAERS Safety Report 4354009-7 (Version None)
Quarter: 2004Q2

REPORT INFORMATION
  Report Type: 
  Country: None (occurrence: None)
  Receive Date: 20040503
  Receipt Date: 20040426
  Transmission Date: 20050107
  Serious: Yes (Hospitalization)
  Sender: FDA-Public Use
  Company Number: 200410107BSV

PATIENT
  Age: 39 Year
  Sex: Male

DRUGS (24)
  1. CIPROFLOXACIN [Suspect]
     Indication: PNEUMONIA
     Dosage: 400 MG, BID
     Dates: start: 20031002
  2. CEFUROXIM (CEFUROXIME) [Suspect]
     Indication: PNEUMONIA
     Dosage: 1.5 G, TID, ENDOTRACHEAL
     Route: 007
  3. HL10 (UNCODEABLE INVESTIGATIONAL DRUG^) [Suspect]
     Dosage: SEE IMAGE
     Route: 007
     Dates: start: 20031002
  4. HL10 (UNCODEABLE INVESTIGATIONAL DRUG^) [Suspect]
     Dosage: SEE IMAGE
     Route: 007
     Dates: start: 20031003
  5. METRONIDAZOLE [Concomitant]
  6. POLYMYXINE [Concomitant]
  7. TOBRAMYCIN [Concomitant]
  8. AMPHOTERICIN B [Concomitant]
  9. PERFALGAN /GFR/ [Concomitant]
  10. PRIMPERAN INJ [Concomitant]
  11. LOSEC [Concomitant]
  12. PREDNISOLONE [Concomitant]
  13. LACTULOSE [Concomitant]
  14. LAXOBERAL [Concomitant]
  15. PAMOL [Concomitant]
  16. TRAMADOL HCL [Concomitant]
  17. MORFIN [Concomitant]
  18. PROPOFOL [Concomitant]
  19. ACTRAPID [Concomitant]
  20. FUROSEMIDE [Concomitant]
  21. ESMERON [Concomitant]
  22. NEOSTIGMIN [Concomitant]
  23. ATROPINE [Concomitant]
  24. DOPAMINE HCL [Concomitant]

REACTIONS (9)
  - ACUTE RESPIRATORY DISTRESS SYNDROME [None]
  - CHOLECYSTITIS [None]
  - GASTROINTESTINAL HAEMORRHAGE [None]
  - HEPATIC FUNCTION ABNORMAL [None]
  - HYPOTENSION [None]
  - JAUNDICE [None]
  - PNEUMONIA [None]
  - RESPIRATORY FAILURE [None]
  - THROMBOCYTOPENIA [None]
